FAERS Safety Report 8456017-3 (Version None)
Quarter: 2012Q2

REPORT INFORMATION
  Report Type: 
  Country: None (occurrence: None)
  Receive Date: 20120621
  Receipt Date: 20120615
  Transmission Date: 20120825
  Serious: Yes (Hospitalization)
  Sender: FDA-Public Use
  Company Number: PHHY2012AU031941

PATIENT
  Sex: Male

DRUGS (4)
  1. EXJADE [Suspect]
     Indication: IRON OVERLOAD
     Dosage: 3000 MG
     Route: 048
     Dates: start: 20080101
  2. EXJADE [Suspect]
     Dosage: 3000 MG
     Route: 048
  3. EXJADE [Suspect]
     Dosage: 2000 MG
     Route: 048
  4. EXJADE [Suspect]
     Dosage: UNK UKN, UNK
     Route: 048

REACTIONS (4)
  - DIARRHOEA [None]
  - HERPES ZOSTER [None]
  - CONSTIPATION [None]
  - AMNESIA [None]
